FAERS Safety Report 5200016-1 (Version None)
Quarter: 2007Q1

REPORT INFORMATION
  Report Type: 
  Country: None (occurrence: None)
  Receive Date: 20070105
  Receipt Date: 20061226
  Transmission Date: 20070707
  Serious: Yes (Life-Threatening)
  Sender: FDA-Public Use
  Company Number: 2006CG01935

PATIENT
  Age: 58 Year
  Sex: Male
  Weight: 78 kg

DRUGS (6)
  1. OMEPRAZOLE [Suspect]
     Dates: start: 20060705, end: 20060912
  2. ZANTAC [Suspect]
     Dates: start: 20060915, end: 20060915
  3. TRANDATE [Suspect]
     Dates: start: 20060907, end: 20060917
  4. CIPROFLOXACIN [Suspect]
     Indication: PROSTATITIS
     Route: 042
     Dates: start: 20060825, end: 20060914
  5. VFEND [Suspect]
     Dates: start: 20060727, end: 20060911
  6. ROVALCYTE [Suspect]
     Dates: start: 20060816, end: 20060911

REACTIONS (2)
  - BONE MARROW FAILURE [None]
  - BONE MARROW TOXICITY [None]
